FAERS Safety Report 4511892-X (Version None)
Quarter: 2004Q4

REPORT INFORMATION
  Report Type: 
  Country: None (occurrence: None)
  Receive Date: 20041129
  Receipt Date: 20041118
  Transmission Date: 20050328
  Serious: Yes (Death, Hospitalization)
  Sender: FDA-Public Use
  Company Number: CN-MERCK-0411CHN00077

PATIENT
  Age: 68 Year
  Sex: Female

DRUGS (2)
  1. VIOXX [Suspect]
     Indication: MUSCULOSKELETAL PAIN
     Route: 048
     Dates: start: 20030101, end: 20041007
  2. VIOXX [Suspect]
     Route: 048
     Dates: start: 20010501, end: 20030101

REACTIONS (5)
  - ANAEMIA [None]
  - CARDIAC FAILURE [None]
  - MEDICATION ERROR [None]
  - RESPIRATORY ARREST [None]
  - STOMACH DISCOMFORT [None]
